FAERS Safety Report 8838025 (Version 1)
Quarter: 2012Q4

REPORT INFORMATION
  Report Type: 
  Country: US (occurrence: US)
  Receive Date: 20121012
  Receipt Date: 20121012
  Transmission Date: 20130627
  Serious: Yes (Hospitalization)
  Sender: FDA-Public Use
  Company Number: US-ROCHE-1139371

PATIENT
  Age: 19 Year
  Sex: Male
  Weight: 73 kg

DRUGS (3)
  1. NUTROPIN AQ [Suspect]
     Indication: HYPOPITUITARISM
     Dosage: 0.006 mg/kg/day, dose per injection: 0.09 ml
     Route: 058
  2. NUTROPIN AQ [Suspect]
     Indication: HYPOGONADISM
  3. TESTOSTERONE [Concomitant]
     Dosage: (150 mg)
     Route: 065

REACTIONS (2)
  - Staphylococcal infection [Unknown]
  - Sinusitis [Unknown]
